FAERS Safety Report 5930831-8 (Version None)
Quarter: 2008Q4

REPORT INFORMATION
  Report Type: 
  Country: None (occurrence: None)
  Receive Date: 20081002
  Receipt Date: 20080611
  Transmission Date: 20090506
  Serious: Yes (Other)
  Sender: FDA-Public Use
  Company Number: 2008-0016901

PATIENT
  Sex: Male
  Weight: 63.5036 kg

DRUGS (1)
  1. TRUVADA [Suspect]

REACTIONS (1)
  - NEPHROPATHY TOXIC [None]
